FAERS Safety Report 8604739-3 (Version None)
Quarter: 2012Q3

REPORT INFORMATION
  Report Type: 
  Country: None (occurrence: None)
  Receive Date: 20120808
  Receipt Date: 20120808
  Transmission Date: 20120928
  Serious: Yes (Other)
  Sender: FDA-Public Use
  Company Number: None

PATIENT
  Sex: Female
  Weight: 73.4827 kg

DRUGS (1)
  1. VIMPAT [Suspect]
     Indication: CONVULSION
     Dosage: 50 MG QD PO
     Route: 048
     Dates: start: 20120404, end: 20120526

REACTIONS (5)
  - MUSCLE SPASMS [None]
  - FINE MOTOR DELAY [None]
  - VARICOSE VEIN [None]
  - BALANCE DISORDER [None]
  - DISTURBANCE IN ATTENTION [None]
